FAERS Safety Report 7656992-0 (Version None)
Quarter: 2011Q3

REPORT INFORMATION
  Report Type: 
  Country: None (occurrence: None)
  Receive Date: 20110804
  Receipt Date: 20110727
  Transmission Date: 20111222
  Serious: Yes (Hospitalization)
  Sender: FDA-Public Use
  Company Number: US-ELI_LILLY_AND_COMPANY-US201106007636

PATIENT
  Sex: Female
  Weight: 62.585 kg

DRUGS (16)
  1. LORAZEPAM [Concomitant]
     Indication: ANXIETY
     Dosage: UNK
     Dates: start: 20110301
  2. HYDROMORPHONE HCL [Concomitant]
     Indication: PAIN
     Dosage: UNK
     Dates: start: 20110301
  3. PEMETREXED [Suspect]
     Indication: NON-SMALL CELL LUNG CANCER RECURRENT
     Dosage: 500 MG/M2, OTHER
     Route: 042
     Dates: start: 20110311, end: 20110603
  4. CARBOPLATIN [Suspect]
     Indication: NON-SMALL CELL LUNG CANCER RECURRENT
     Dosage: 6 DF, OTHER
     Dates: start: 20110311, end: 20110603
  5. FOLIC ACID [Concomitant]
     Indication: PREMEDICATION
     Dosage: UNK
     Dates: start: 20110304
  6. ONDANSETRON [Concomitant]
     Indication: NAUSEA
     Dosage: UNK
     Dates: start: 20110311
  7. RAMUCIRUMAB (1121B) (LY3009806) [Suspect]
     Dosage: 10 MG/KG, UNK
     Route: 042
     Dates: start: 20110626
  8. CARBOPLATIN [Suspect]
     Dosage: 6 DF, OTHER
     Dates: start: 20110626
  9. AMBIEN [Concomitant]
     Indication: INSOMNIA
     Dosage: UNK
     Dates: start: 20110429
  10. LEVOTHYROXINE SODIUM [Concomitant]
     Indication: HYPOTHYROIDISM
     Dosage: UNK
     Dates: start: 20080101
  11. DEXAMETHASONE [Concomitant]
     Indication: PREMEDICATION
     Dosage: UNK
     Dates: start: 20110311
  12. PROVENTIL-HFA [Concomitant]
     Indication: ASTHMA
     Dosage: UNK
     Dates: start: 20100101
  13. PAROXETINE HCL [Concomitant]
     Indication: DEPRESSION
     Dosage: UNK
     Dates: start: 20080101
  14. RAMUCIRUMAB (1121B) (LY3009806) [Suspect]
     Indication: NON-SMALL CELL LUNG CANCER RECURRENT
     Dosage: 10 MG/KG, OTHER
     Route: 042
     Dates: start: 20110311, end: 20110603
  15. PEMETREXED [Suspect]
     Dosage: 500 MG/M2, OTHER
     Dates: start: 20110626
  16. VITAMIN B-12 [Concomitant]
     Indication: PREMEDICATION
     Dosage: UNK
     Dates: start: 20110304

REACTIONS (1)
  - DEHYDRATION [None]
